FAERS Safety Report 7724342-7 (Version None)
Quarter: 2011Q3

REPORT INFORMATION
  Report Type: 
  Country: None (occurrence: None)
  Receive Date: 20110829
  Receipt Date: 20110815
  Transmission Date: 20111222
  Serious: Yes (Life-Threatening)
  Sender: FDA-Public Use
  Company Number: 1019332

PATIENT
  Age: 73 Year
  Sex: Male
  Weight: 107 kg

DRUGS (12)
  1. METOPROLOL SUCCINATE [Concomitant]
  2. FISH OIL [Concomitant]
  3. INSULIN DETEMIR [Concomitant]
  4. METFORMIN [Concomitant]
  5. VITAMIN D [Concomitant]
  6. ASPIRIN [Concomitant]
  7. FOSINOPRIL SODIUM [Concomitant]
  8. ROSUVASTATIN [Concomitant]
  9. ASCORBIC ACID [Concomitant]
  10. DIPYRIDAMOLE [Suspect]
     Indication: POSITRON EMISSION TOMOGRAM
     Dosage: 0.57 MG/KG, INTRAVENOUS
     Route: 042
  11. GLIMEPIRIDE [Concomitant]
  12. SOTALOL HCL [Concomitant]

REACTIONS (9)
  - TROPONIN T INCREASED [None]
  - PULSELESS ELECTRICAL ACTIVITY [None]
  - SHOCK [None]
  - BLOOD PRESSURE INCREASED [None]
  - ANAPHYLACTIC REACTION [None]
  - NON-CARDIOGENIC PULMONARY OEDEMA [None]
  - ELECTROCARDIOGRAM ST-T CHANGE [None]
  - ELECTROCARDIOGRAM QRS COMPLEX SHORTENED [None]
  - TREATMENT FAILURE [None]
